FAERS Safety Report 5091205-8 (Version None)
Quarter: 2006Q3

REPORT INFORMATION
  Report Type: 
  Country: None (occurrence: None)
  Receive Date: 20060825
  Receipt Date: 20060825
  Transmission Date: 20061208
  Serious: No
  Sender: FDA-Public Use
  Company Number: None

PATIENT
  Sex: Female
  Weight: 113.3993 kg

DRUGS (3)
  1. METFORMIN HCL [Suspect]
     Indication: DIABETES MELLITUS
     Dates: start: 20060712, end: 20060823
  2. SYNTHROID [Concomitant]
  3. DARVOCET [Concomitant]

REACTIONS (6)
  - DRY SKIN [None]
  - PHARMACEUTICAL PRODUCT COMPLAINT [None]
  - SKIN CHAPPED [None]
  - SKIN DISORDER [None]
  - SKIN EXFOLIATION [None]
  - SKIN HAEMORRHAGE [None]
